FAERS Safety Report 6611155-2 (Version None)
Quarter: 2010Q1

REPORT INFORMATION
  Report Type: 
  Country: None (occurrence: None)
  Receive Date: 20100303
  Receipt Date: 20100216
  Transmission Date: 20100710
  Serious: Yes (Hospitalization)
  Sender: FDA-Public Use
  Company Number: US-CELGENEUS-163-21880-10021438

PATIENT
  Sex: Male

DRUGS (7)
  1. REVLIMID [Suspect]
     Route: 048
     Dates: start: 20100106, end: 20100119
  2. NEUPOGEN [Suspect]
     Route: 058
     Dates: start: 20100106, end: 20100119
  3. ACYCLOVIR [Concomitant]
     Indication: ANTIVIRAL PROPHYLAXIS
     Route: 048
     Dates: start: 20090915
  4. PROTONIX [Concomitant]
     Indication: PROPHYLAXIS
     Route: 048
     Dates: start: 20090915
  5. MAGNESIUM OXIDE [Concomitant]
     Indication: DRUG USE FOR UNKNOWN INDICATION
     Route: 048
     Dates: start: 20090915
  6. VFEND [Concomitant]
     Indication: ANTIFUNGAL PROPHYLAXIS
     Route: 048
     Dates: start: 20090915
  7. PENTAMIDINE ISETHIONATE [Concomitant]
     Route: 055
     Dates: start: 20091015

REACTIONS (4)
  - COLD TYPE HAEMOLYTIC ANAEMIA [None]
  - FATIGUE [None]
  - HYPOTHERMIA [None]
  - RASH [None]
